FAERS Safety Report 5707193-4 (Version None)
Quarter: 2008Q2

REPORT INFORMATION
  Report Type: 
  Country: None (occurrence: None)
  Receive Date: 20080416
  Receipt Date: 20080407
  Transmission Date: 20081010
  Serious: Yes (Other)
  Sender: FDA-Public Use
  Company Number: JP-MERCK-0804USA01708

PATIENT
  Age: 6 Year
  Sex: Male

DRUGS (5)
  1. SINGULAIR [Suspect]
     Indication: ASTHMA
     Route: 048
     Dates: start: 20080315, end: 20080317
  2. FLUTIDE [Concomitant]
     Indication: ASTHMA
     Dates: start: 20080315
  3. THEO-DUR [Concomitant]
     Route: 048
  4. ALESION [Concomitant]
     Route: 048
  5. ONON [Concomitant]
     Route: 048
     Dates: end: 20080314

REACTIONS (1)
  - SLEEP DISORDER [None]
